FAERS Safety Report 14821088 (Version 1)
Quarter: 2018Q2

REPORT INFORMATION
  Report Type: Spontaneous
  Country: US (occurrence: US)
  Receive Date: 20180427
  Receipt Date: 20180427
  Transmission Date: 20180711
  Serious: No
  Sender: FDA-Public Use
  Company Number: US-BAYER-2018-075822

PATIENT
  Sex: Female

DRUGS (1)
  1. ALEVE [Suspect]
     Active Substance: NAPROXEN SODIUM
     Indication: ABDOMINAL PAIN LOWER
     Dosage: UNK
     Dates: start: 2012

REACTIONS (1)
  - Abdominal discomfort [Not Recovered/Not Resolved]
